FAERS Safety Report 15787456 (Version 1)
Quarter: 2019Q1

REPORT INFORMATION
  Report Type: Spontaneous
  Country: US (occurrence: US)
  Receive Date: 20190103
  Receipt Date: 20190103
  Transmission Date: 20190417
  Serious: Yes (Other)
  Sender: FDA-Public Use
  Company Number: US-BAUSCH-BL-2018-036254

PATIENT
  Age: 70 Year
  Sex: Male

DRUGS (6)
  1. DORZOLAMIDE, TIMOLOL [Suspect]
     Active Substance: DORZOLAMIDE\TIMOLOL
     Indication: INTRAOCULAR PRESSURE INCREASED
     Route: 065
  2. BRIMONIDINE [Suspect]
     Active Substance: BRIMONIDINE TARTRATE
     Indication: INTRAOCULAR PRESSURE INCREASED
     Route: 065
  3. LATANOPROST. [Suspect]
     Active Substance: LATANOPROST
     Indication: INTRAOCULAR PRESSURE INCREASED
     Route: 065
  4. DORZOLAMIDE, TIMOLOL [Suspect]
     Active Substance: DORZOLAMIDE\TIMOLOL
     Dosage: RESTARTED IN THE LEFT EYE
     Route: 065
  5. BRIMONIDINE [Suspect]
     Active Substance: BRIMONIDINE TARTRATE
     Dosage: RESTARTED IN THE LEFT EYE
     Route: 065
  6. LATANOPROST. [Suspect]
     Active Substance: LATANOPROST
     Dosage: RESTARTED
     Route: 065

REACTIONS (2)
  - Choroidal effusion [Recovered/Resolved]
  - Hypotony of eye [Recovered/Resolved]
